FAERS Safety Report 7221488 (Version 2)
Quarter: 2020Q3

REPORT INFORMATION
  Report Type: Report from Study
  Country: JP (occurrence: JP)
  Receive Date: 20091217
  Receipt Date: 20110119
  Transmission Date: 20201104
  Serious: Yes (Hospitalization, Other)
  Sender: FDA-Public Use
  Company Number: JP-ROCHE-669102

PATIENT
  Age: 67 Year
  Sex: Female

DRUGS (20)
  1. CAPECITABINE. [Suspect]
     Active Substance: CAPECITABINE
     Route: 048
     Dates: start: 20091103, end: 20091103
  2. OMEPRAZOLE. [Concomitant]
     Active Substance: OMEPRAZOLE
     Route: 048
  3. PRIMPERAN [Concomitant]
     Active Substance: METOCLOPRAMIDE HYDROCHLORIDE
     Route: 048
     Dates: start: 20091009
  4. DEXAMETHASONE ACETATE [Concomitant]
     Active Substance: DEXAMETHASONE ACETATE
     Route: 042
     Dates: start: 20091008, end: 20091012
  5. CISPLATIN. [Suspect]
     Active Substance: CISPLATIN
     Indication: GASTRIC CANCER STAGE IV
     Route: 065
     Dates: start: 20091008, end: 20091008
  6. MAGLAX [Concomitant]
     Active Substance: MAGNESIUM OXIDE
     Route: 048
     Dates: start: 20091009
  7. LACTIC ACID\SODIUM [Concomitant]
     Active Substance: LACTIC ACID\SODIUM
     Route: 042
     Dates: start: 20091009
  8. CAPECITABINE. [Suspect]
     Active Substance: CAPECITABINE
     Route: 048
     Dates: start: 20091010, end: 20091010
  9. CAPECITABINE. [Suspect]
     Active Substance: CAPECITABINE
     Route: 048
     Dates: start: 20091015, end: 20091015
  10. CAPECITABINE. [Suspect]
     Active Substance: CAPECITABINE
     Indication: GASTRIC CANCER STAGE IV
     Route: 048
     Dates: start: 20091008, end: 20091009
  11. LASIX [Concomitant]
     Active Substance: FUROSEMIDE
     Route: 042
     Dates: start: 20091008, end: 20091008
  12. ALGINIC ACID [Concomitant]
     Active Substance: ALGINIC ACID
     Route: 048
     Dates: start: 20091009
  13. CAPECITABINE. [Suspect]
     Active Substance: CAPECITABINE
     Route: 048
     Dates: start: 20091029, end: 20091102
  14. CISPLATIN. [Suspect]
     Active Substance: CISPLATIN
     Route: 065
     Dates: start: 20091029, end: 20091029
  15. MANNITOL. [Concomitant]
     Active Substance: MANNITOL
     Route: 042
     Dates: start: 20091008, end: 20091012
  16. GRANISETRON [Concomitant]
     Active Substance: GRANISETRON
     Route: 042
     Dates: start: 20091008, end: 20091012
  17. TEPRENONE [Concomitant]
     Active Substance: TEPRENONE
     Dosage: FORM: ORAL FORMULATION
     Route: 048
     Dates: start: 20091009
  18. CEDIRANIB. [Suspect]
     Active Substance: CEDIRANIB
     Indication: GASTRIC CANCER STAGE IV
     Dosage: FORM: ORAL FORMULATION
     Route: 048
     Dates: start: 20091009, end: 20091103
  19. JUVELA N [Concomitant]
     Route: 048
  20. CAPECITABINE. [Suspect]
     Active Substance: CAPECITABINE
     Route: 048
     Dates: start: 20091016, end: 20091021

REACTIONS (9)
  - Disease progression [Unknown]
  - Hepatic enzyme increased [Unknown]
  - Palpitations [Unknown]
  - Pulmonary embolism [Recovering/Resolving]
  - Swelling [Unknown]
  - Oedema peripheral [Unknown]
  - Nausea [Unknown]
  - Fatigue [Unknown]
  - Deep vein thrombosis [Unknown]

NARRATIVE: CASE EVENT DATE: 20091001
